FAERS Safety Report 9938451 (Version 2)
Quarter: 2014Q1

REPORT INFORMATION
  Report Type: Report from Study
  Country: US (occurrence: US)
  Receive Date: 20140303
  Receipt Date: 20140303
  Transmission Date: 20141002
  Serious: No
  Sender: FDA-Public Use
  Company Number: US-ABBVIE-11P-163-0857845-00

PATIENT
  Sex: Female
  Weight: 108.96 kg

DRUGS (16)
  1. HUMIRA [Suspect]
     Indication: PSORIATIC ARTHROPATHY
     Route: 058
     Dates: start: 2010, end: 201105
  2. HUMIRA [Suspect]
     Indication: PSORIASIS
     Route: 058
     Dates: start: 2011, end: 2011
  3. HUMIRA [Suspect]
     Route: 058
     Dates: start: 201204, end: 201206
  4. MELOXICAM [Suspect]
     Indication: PSORIASIS
     Dosage: 7.5 MG - PER DAY
     Dates: start: 2012
  5. MELOXICAM [Suspect]
     Indication: PSORIATIC ARTHROPATHY
  6. METHOTREXATE [Suspect]
     Indication: PSORIASIS
     Dates: start: 2012
  7. METHOTREXATE [Suspect]
     Indication: PSORIATIC ARTHROPATHY
  8. METFORMIN [Concomitant]
     Indication: GLUCOSE TOLERANCE IMPAIRED
     Dosage: 1000 MG - ONE TABLET DAILY
  9. SYNTHROID [Concomitant]
     Indication: HYPOTHYROIDISM
     Dosage: PER DAY
  10. EFFEXOR [Concomitant]
     Indication: HORMONE LEVEL ABNORMAL
  11. SIMVASTATIN [Concomitant]
     Indication: BLOOD CHOLESTEROL INCREASED
     Dosage: 20MG - PER DAY
  12. NEXIUM [Concomitant]
     Indication: GASTROOESOPHAGEAL REFLUX DISEASE
  13. BABY ASPIRIN [Concomitant]
     Indication: PROPHYLAXIS
     Dosage: EVERY DAY
  14. BABY ASPIRIN [Concomitant]
     Indication: CARDIAC DISORDER
  15. TRAMADOL [Concomitant]
     Indication: ARTHRALGIA
  16. LEVOTHYROXINE [Concomitant]
     Indication: HYPOTHYROIDISM

REACTIONS (13)
  - Arthralgia [Not Recovered/Not Resolved]
  - Pain [Unknown]
  - Fatigue [Unknown]
  - Vitamin D decreased [Unknown]
  - Psoriatic arthropathy [Not Recovered/Not Resolved]
  - Joint swelling [Not Recovered/Not Resolved]
  - Hepatic enzyme increased [Recovered/Resolved]
  - Drug ineffective [Not Recovered/Not Resolved]
  - Psoriatic arthropathy [Unknown]
  - Arthropathy [Unknown]
  - Psoriasis [Not Recovered/Not Resolved]
  - Local swelling [Not Recovered/Not Resolved]
  - Swelling [Not Recovered/Not Resolved]
